FAERS Safety Report 6733466-2 (Version None)
Quarter: 2010Q2

REPORT INFORMATION
  Report Type: 
  Country: None (occurrence: None)
  Receive Date: 20100520
  Receipt Date: 20100506
  Transmission Date: 20101027
  Serious: Yes (Hospitalization, Other)
  Sender: FDA-Public Use
  Company Number: PHHY2010US29628

PATIENT
  Sex: Female

DRUGS (24)
  1. EXJADE [Suspect]
     Indication: IRON OVERLOAD
     Dosage: 1000 MG, QD
     Route: 048
     Dates: start: 20090804
  2. DOCUSATE SODIUM [Concomitant]
     Dosage: 100 MG, TID
     Route: 048
  3. FOLIC ACID [Concomitant]
     Dosage: 1 MG, QD
     Route: 048
  4. URSODIOL [Concomitant]
     Dosage: 300 MG, TID
     Route: 048
  5. ACYCLOVIR [Concomitant]
     Dosage: 400 MG, TID
     Route: 048
  6. CALCIUM CARBONATE W/VITAMIN D NOS [Concomitant]
     Dosage: 1 DF, QD
     Route: 048
  7. MYCOPHENOLATE MOFETIL [Concomitant]
     Dosage: 1000 MG, TID
     Route: 048
  8. FLUCONAZOLE [Concomitant]
     Dosage: 400 MG, QD
     Route: 048
  9. LISINOPRIL [Concomitant]
     Dosage: 40 MG, QD
     Route: 048
  10. MAGNESIUM OXIDE [Concomitant]
     Dosage: 800 MG, TID
     Route: 048
  11. MAGNESIUM OXIDE [Concomitant]
     Dosage: 400 MG, TID
     Route: 048
  12. MULTI-VITAMINS [Concomitant]
     Dosage: 1 DF, QD
     Route: 048
  13. SIROLIMUS [Concomitant]
     Dosage: 1 MG, QD
     Route: 048
  14. OXYBUTYNIN [Concomitant]
     Dosage: 5 MG, BID
     Route: 048
  15. FAMOTIDINE [Concomitant]
     Dosage: 20 MG, BID
     Route: 048
  16. PREDNISONE TAB [Concomitant]
     Dosage: 20 MG, QD
     Route: 048
  17. FLUOXETINE [Concomitant]
     Dosage: 40 MG, QD
     Route: 048
  18. METOCLOPRAMIDE HYDROCHLORIDE [Concomitant]
     Dosage: 10 MG, TID
     Route: 048
  19. SARNA [Concomitant]
     Route: 061
  20. SENNOSIDE [Concomitant]
     Dosage: 2 DF, BID
     Route: 048
  21. SIMVASTATIN [Concomitant]
     Dosage: 80 MG, QD
     Route: 048
  22. TACROLIMUS [Concomitant]
     Dosage: 3 MG, BID
     Route: 048
  23. SULFAMETHOXAZOLE AND TRIMETHOPRIM [Concomitant]
  24. AMFETAMINE W/DEXAMFETAMINE [Concomitant]

REACTIONS (25)
  - ACUTE GRAFT VERSUS HOST DISEASE IN LIVER [None]
  - ANXIETY [None]
  - ASTHENIA [None]
  - BLOOD CREATININE INCREASED [None]
  - BLOOD PRESSURE INCREASED [None]
  - BODY TEMPERATURE DECREASED [None]
  - CHILLS [None]
  - DEHYDRATION [None]
  - DIARRHOEA [None]
  - DIZZINESS [None]
  - EOSINOPHILIA [None]
  - FATIGUE [None]
  - HAEMORRHOIDS [None]
  - LIVER FUNCTION TEST ABNORMAL [None]
  - MUSCULOSKELETAL STIFFNESS [None]
  - NAUSEA [None]
  - PAIN [None]
  - PRODUCTIVE COUGH [None]
  - PRURITUS [None]
  - RASH ERYTHEMATOUS [None]
  - RENAL FAILURE ACUTE [None]
  - RENAL IMPAIRMENT [None]
  - STEM CELL TRANSPLANT [None]
  - TACHYPNOEA [None]
  - VOMITING [None]
